FAERS Safety Report 9074316 (Version 1)
Quarter: 2013Q1

REPORT INFORMATION
  Report Type: Report from Study
  Country: US (occurrence: US)
  Receive Date: 20130128
  Receipt Date: 20130128
  Transmission Date: 20140127
  Serious: No
  Sender: FDA-Public Use
  Company Number: US-ABBOTT-12P-163-0912983-00

PATIENT
  Sex: Female

DRUGS (6)
  1. HUMIRA 40 MG/0.8 ML PEN [Suspect]
     Indication: RHEUMATOID ARTHRITIS
     Dates: start: 201105, end: 201112
  2. LOSEASONIQUE [Concomitant]
     Indication: CONTRACEPTION
  3. LORATADINE [Concomitant]
     Indication: HYPERSENSITIVITY
  4. LEFLUNOMIDE [Concomitant]
     Indication: RHEUMATOID ARTHRITIS
  5. ARTHROTEC [Concomitant]
     Indication: RHEUMATOID ARTHRITIS
  6. VITAMIN D [Concomitant]
     Indication: VITAMIN D DEFICIENCY

REACTIONS (1)
  - Weight increased [Not Recovered/Not Resolved]
